FAERS Safety Report 22386389 (Version 1)
Quarter: 2023Q2

REPORT INFORMATION
  Report Type: Spontaneous
  Country: US (occurrence: US)
  Receive Date: 20230530
  Receipt Date: 20230530
  Transmission Date: 20230722
  Serious: Yes (Hospitalization)
  Sender: FDA-Public Use
  Company Number: US-drreddys-LIT/USA/23/0165936

PATIENT
  Age: 40 Year
  Sex: Male

DRUGS (17)
  1. DEXAMETHASONE [Suspect]
     Active Substance: DEXAMETHASONE
     Indication: Prophylaxis of nausea and vomiting
  2. OLANZAPINE [Suspect]
     Active Substance: OLANZAPINE
     Indication: Prophylaxis of nausea and vomiting
     Route: 048
  3. DIPHENHYDRAMINE HYDROCHLORIDE [Suspect]
     Active Substance: DIPHENHYDRAMINE HYDROCHLORIDE
     Indication: Prophylaxis
  4. DIPHENHYDRAMINE HYDROCHLORIDE [Suspect]
     Active Substance: DIPHENHYDRAMINE HYDROCHLORIDE
     Indication: Vomiting
  5. FAMOTIDINE [Suspect]
     Active Substance: FAMOTIDINE
     Indication: Prophylaxis
  6. ONDANSETRON [Suspect]
     Active Substance: ONDANSETRON
     Indication: Prophylaxis of nausea and vomiting
  7. PACLITAXEL [Suspect]
     Active Substance: PACLITAXEL
     Indication: Testis cancer
     Dosage: OVER 3 HOURS ON DAYS 1
  8. IFOSFAMIDE [Suspect]
     Active Substance: IFOSFAMIDE
     Indication: Testis cancer
     Dosage: OVER 1 HOUR ON DAYS 1-5
  9. CISPLATIN [Suspect]
     Active Substance: CISPLATIN
     Indication: Testis cancer
     Dosage: OVER 1 HOUR ON DAYS 1-5
  10. MESNA [Suspect]
     Active Substance: MESNA
     Indication: Prophylaxis
     Route: 048
  11. MESNA [Suspect]
     Active Substance: MESNA
     Route: 042
  12. SODIUM CHLORIDE [Concomitant]
     Active Substance: SODIUM CHLORIDE
     Indication: Product used for unknown indication
     Dosage: ONE LITRE BEFORE CISPLATIN
  13. SODIUM CHLORIDE [Concomitant]
     Active Substance: SODIUM CHLORIDE
     Dosage: ONE LITRE AFTER CISPLATIN
  14. POTASSIUM [Concomitant]
     Active Substance: POTASSIUM
     Indication: Product used for unknown indication
     Dosage: ONE LITRE BEFORE CISPLATIN
  15. POTASSIUM [Concomitant]
     Active Substance: POTASSIUM
     Dosage: ONE LITRE AFTER CISPLATIN
  16. MAGNESIUM [Concomitant]
     Active Substance: MAGNESIUM
     Indication: Product used for unknown indication
     Dosage: ONE LITRE BEFORE CISPLATIN
  17. MAGNESIUM [Concomitant]
     Active Substance: MAGNESIUM
     Dosage: ONE LITRE AFTER CISPLATIN

REACTIONS (3)
  - Anaemia [Unknown]
  - Pyrexia [Unknown]
  - Product use in unapproved indication [Unknown]
